FAERS Safety Report 5986931-X (Version None)
Quarter: 2008Q4

REPORT INFORMATION
  Report Type: 
  Country: None (occurrence: None)
  Receive Date: 20081209
  Receipt Date: 20081126
  Transmission Date: 20090506
  Serious: Yes (Hospitalization)
  Sender: FDA-Public Use
  Company Number: FR-AMGEN-UK318953

PATIENT
  Sex: Female
  Weight: 120 kg

DRUGS (8)
  1. ROMIPLOSTIM [Suspect]
     Indication: IDIOPATHIC THROMBOCYTOPENIC PURPURA
     Route: 058
     Dates: start: 20080327, end: 20080501
  2. ROMIPLOSTIM [Suspect]
     Route: 058
     Dates: start: 20080522, end: 20080601
  3. ROMIPLOSTIM [Suspect]
     Route: 058
     Dates: start: 20080623
  4. ROMIPLOSTIM [Suspect]
     Route: 058
     Dates: start: 20080601, end: 20080706
  5. ROMIPLOSTIM [Suspect]
     Route: 058
     Dates: start: 20080707, end: 20080727
  6. ROMIPLOSTIM [Suspect]
     Route: 058
     Dates: start: 20080728, end: 20080903
  7. GLUCOVANCE [Concomitant]
     Route: 065
  8. LEVOTHYROX [Concomitant]
     Route: 065

REACTIONS (2)
  - ERYTHROBLASTOSIS [None]
  - LEUKOCYTOSIS [None]
